FAERS Safety Report 14233410 (Version 2)
Quarter: 2017Q4

REPORT INFORMATION
  Report Type: Spontaneous
  Country: US (occurrence: US)
  Receive Date: 20171129
  Receipt Date: 20171229
  Transmission Date: 20180321
  Serious: No
  Sender: FDA-Public Use
  Company Number: US-VERTEX PHARMACEUTICALS-2017-006527

PATIENT
  Age: 3 Year
  Sex: Female

DRUGS (9)
  1. LORATADINE. [Concomitant]
     Active Substance: LORATADINE
  2. FLUTICASONE. [Concomitant]
     Active Substance: FLUTICASONE
  3. PERTZYE [Concomitant]
     Active Substance: PANCRELIPASE AMYLASE\PANCRELIPASE LIPASE\PANCRELIPASE PROTEASE
  4. D-VI-SOL [Concomitant]
  5. BETHKIS [Suspect]
     Active Substance: TOBRAMYCIN
     Indication: CYSTIC FIBROSIS
     Dosage: 1 DOSAGE FORM, BID
     Route: 055
     Dates: start: 20170812
  6. KALYDECO [Suspect]
     Active Substance: IVACAFTOR
     Indication: CYSTIC FIBROSIS
     Dosage: 50 MG, BID
     Route: 048
     Dates: start: 20170812
  7. GENERLAC [Concomitant]
     Active Substance: LACTULOSE
  8. FLINTSTONES COMPLETE [Concomitant]
  9. DEKA [Concomitant]

REACTIONS (1)
  - Gastrostomy [Unknown]

NARRATIVE: CASE EVENT DATE: 201711
